FAERS Safety Report 14175677 (Version 2)
Quarter: 2018Q4

REPORT INFORMATION
  Report Type: Spontaneous
  Country: US (occurrence: US)
  Receive Date: 20171109
  Receipt Date: 20181011
  Transmission Date: 20190204
  Serious: No
  Sender: FDA-Public Use
  Company Number: US-ALLERGAN-1730919US

PATIENT
  Age: 85 Year
  Sex: Female

DRUGS (1)
  1. COMBIGAN [Suspect]
     Active Substance: BRIMONIDINE TARTRATE\TIMOLOL MALEATE
     Indication: PROPHYLAXIS
     Dosage: UNK
     Dates: start: 201707

REACTIONS (4)
  - Eye irritation [Recovered/Resolved]
  - Product complaint [Unknown]
  - Off label use [Unknown]
  - Dry eye [Unknown]
